FAERS Safety Report 12756660 (Version 2)
Quarter: 2016Q4

REPORT INFORMATION
  Report Type: Spontaneous
  Country: DE (occurrence: DE)
  Receive Date: 20160917
  Receipt Date: 20161013
  Transmission Date: 20170207
  Serious: Yes (Death, Hospitalization, Other)
  Sender: FDA-Public Use
  Company Number: DE-ALVOGEN-2016-ALVOGEN-028572

PATIENT
  Age: 69 Year
  Sex: Male
  Weight: 112 kg

DRUGS (4)
  1. ADENURIC [Concomitant]
     Active Substance: FEBUXOSTAT
     Indication: PRODUCT USED FOR UNKNOWN INDICATION
  2. RAMIPRIL. [Concomitant]
     Active Substance: RAMIPRIL
     Indication: PRODUCT USED FOR UNKNOWN INDICATION
  3. CLINDAMYCIN. [Suspect]
     Active Substance: CLINDAMYCIN
     Indication: PRODUCT USED FOR UNKNOWN INDICATION
  4. ELIQUIS [Suspect]
     Active Substance: APIXABAN
     Indication: CEREBROVASCULAR ACCIDENT
     Route: 048
     Dates: start: 20140424, end: 20150724

REACTIONS (9)
  - Pneumonia [Fatal]
  - Pulmonary hypertension [Fatal]
  - Sepsis [Fatal]
  - Hypotension [Fatal]
  - Pulmonary fibrosis [Fatal]
  - Respiratory failure [Fatal]
  - Thrombocytopenia [Fatal]
  - Hypoxia [Fatal]
  - Syncope [Fatal]

NARRATIVE: CASE EVENT DATE: 20150718
